FAERS Safety Report 13968913 (Version 1)
Quarter: 2017Q3

REPORT INFORMATION
  Report Type: Spontaneous
  Country: US (occurrence: US)
  Receive Date: 20170914
  Receipt Date: 20170914
  Transmission Date: 20171128
  Serious: No
  Sender: FDA-Public Use
  Company Number: US-ASTELLAS-2016US038118

PATIENT
  Age: 71 Year
  Sex: Male

DRUGS (1)
  1. XTANDI [Suspect]
     Active Substance: ENZALUTAMIDE
     Indication: HORMONE-REFRACTORY PROSTATE CANCER
     Route: 048

REACTIONS (7)
  - Oedema peripheral [Unknown]
  - Dental caries [Unknown]
  - Depression [Unknown]
  - Memory impairment [Unknown]
  - Toothache [Unknown]
  - Anxiety [Unknown]
  - Hot flush [Unknown]

NARRATIVE: CASE EVENT DATE: 20160901
